FAERS Safety Report 7209400-8 (Version None)
Quarter: 2010Q4

REPORT INFORMATION
  Report Type: 
  Country: None (occurrence: None)
  Receive Date: 20101222
  Receipt Date: 20101213
  Transmission Date: 20110411
  Serious: Yes (Other)
  Sender: FDA-Public Use
  Company Number: TRP_07454_2010

PATIENT
  Age: 50 Year

DRUGS (2)
  1. RIBAVIRIN [Suspect]
     Indication: HEPATITIS C
     Dosage: (DF)
     Dates: start: 20030101
  2. PEGYLATED INTERFERON ALPHA [Suspect]
     Dosage: (DF)
     Dates: start: 20030101

REACTIONS (6)
  - AUTOIMMUNE THROMBOCYTOPENIA [None]
  - CONDITION AGGRAVATED [None]
  - HEPATIC CIRRHOSIS [None]
  - SPLENOMEGALY [None]
  - THERAPEUTIC RESPONSE DECREASED [None]
  - VARICES OESOPHAGEAL [None]
